FAERS Safety Report 17063794 (Version 2)
Quarter: 2019Q4

REPORT INFORMATION
  Report Type: Spontaneous
  Country: CN (occurrence: CN)
  Receive Date: 20191122
  Receipt Date: 20191126
  Transmission Date: 20200122
  Serious: Yes (Other)
  Sender: FDA-Public Use
  Company Number: CN-ABBVIE-19K-035-3006409-00

PATIENT
  Age: 5 Year
  Sex: Female
  Weight: 14.5 kg

DRUGS (1)
  1. SEVOFRANE [Suspect]
     Active Substance: SEVOFLURANE
     Indication: ANAESTHESIA
     Route: 055
     Dates: start: 20191107, end: 20191107

REACTIONS (3)
  - Musculoskeletal disorder [Unknown]
  - Enuresis [Recovering/Resolving]
  - Joint hyperextension [Recovering/Resolving]

NARRATIVE: CASE EVENT DATE: 20191107
